FAERS Safety Report 25944675 (Version 1)
Quarter: 2025Q4

REPORT INFORMATION
  Report Type: Spontaneous
  Country: US (occurrence: None)
  Receive Date: 20251021
  Receipt Date: 20251021
  Transmission Date: 20260118
  Serious: Yes (Hospitalization)
  Sender: FDA-CTU
  Company Number: None

PATIENT
  Age: 66 Year
  Sex: Female
  Weight: 59.42 kg

DRUGS (1)
  1. CAPECITABINE [Suspect]
     Active Substance: CAPECITABINE
     Indication: Cholangiocarcinoma
     Dosage: FREQUENCY : AS DIRECTED;?3 TABLETS IN MORNIN AND 3 TABLETS IN EVENIN FOR 2 WEEKS
     Route: 048

REACTIONS (1)
  - Liver operation [None]

NARRATIVE: CASE EVENT DATE: 20251017
